FAERS Safety Report 22198791 (Version 1)
Quarter: 2023Q2

REPORT INFORMATION
  Report Type: Spontaneous
  Country: CH (occurrence: None)
  Receive Date: 20230411
  Receipt Date: 20230411
  Transmission Date: 20230722
  Serious: Yes (Other)
  Sender: FDA-Public Use
  Company Number: CH-ROCHE-3325764

PATIENT
  Age: 62 Year
  Sex: Female

DRUGS (14)
  1. AVASTIN [Suspect]
     Active Substance: BEVACIZUMAB
     Indication: Ovarian cancer
     Dosage: 6 CYCLES, START DATE 09/APR/
     Route: 065
     Dates: end: 20200727
  2. AVASTIN [Suspect]
     Active Substance: BEVACIZUMAB
     Indication: Fallopian tube cancer
  3. CARBOPLATIN [Suspect]
     Active Substance: CARBOPLATIN
     Indication: Ovarian cancer
     Dosage: 6 CYCLES, LAST DOSE ADMINISTERED UNTIL FROM 09/APR/ TO 27/JUL/2020 AND UNTIL /NOV/2021
     Route: 065
     Dates: end: 201908
  4. CARBOPLATIN [Suspect]
     Active Substance: CARBOPLATIN
     Indication: Fallopian tube cancer
  5. PACLITAXEL [Suspect]
     Active Substance: PACLITAXEL
     Indication: Ovarian cancer
     Route: 065
     Dates: end: 20200727
  6. PACLITAXEL [Suspect]
     Active Substance: PACLITAXEL
     Indication: Fallopian tube cancer
  7. GEMCITABINE [Suspect]
     Active Substance: GEMCITABINE
     Indication: Ovarian cancer
     Dosage: 6 CYCLES, START DATE 09/APR/
     Route: 065
     Dates: end: 20200727
  8. GEMCITABINE [Suspect]
     Active Substance: GEMCITABINE
     Indication: Fallopian tube cancer
  9. OLAPARIB [Suspect]
     Active Substance: OLAPARIB
     Indication: Ovarian cancer
     Route: 065
     Dates: end: 202102
  10. OLAPARIB [Suspect]
     Active Substance: OLAPARIB
     Indication: Fallopian tube cancer
  11. DOXORUBICIN [Suspect]
     Active Substance: DOXORUBICIN
     Indication: Ovarian cancer
     Route: 065
     Dates: end: 202111
  12. DOXORUBICIN [Suspect]
     Active Substance: DOXORUBICIN
     Indication: Fallopian tube cancer
  13. CYCLOPHOSPHAMIDE [Suspect]
     Active Substance: CYCLOPHOSPHAMIDE
     Indication: Ovarian cancer
     Dosage: METRONOMIC
     Route: 065
  14. CYCLOPHOSPHAMIDE [Suspect]
     Active Substance: CYCLOPHOSPHAMIDE
     Indication: Fallopian tube cancer

REACTIONS (1)
  - Disease progression [Unknown]
